FAERS Safety Report 21300305 (Version 1)
Quarter: 2022Q3

REPORT INFORMATION
  Report Type: Spontaneous
  Country: CN (occurrence: CN)
  Receive Date: 20220907
  Receipt Date: 20220907
  Transmission Date: 20221026
  Serious: Yes (Other)
  Sender: FDA-Public Use
  Company Number: CN-STRIDES ARCOLAB LIMITED-2022SP011134

PATIENT

DRUGS (3)
  1. ETOPOSIDE [Suspect]
     Active Substance: ETOPOSIDE
     Indication: Acute myeloid leukaemia
     Dosage: 100 MILLIGRAM/SQ. METER; (ON DAY 1- DAY 5); (INDUCTION THERAPY WITH DAE REGIMEN)
     Route: 065
  2. DAUNORUBICIN [Suspect]
     Active Substance: DAUNORUBICIN
     Indication: Acute myeloid leukaemia
     Dosage: 40 MILLIGRAM/SQ. METER; (ON DAY 1, DAY 3 AND DAY 5); (INDUCTION THERAPY WITH DAE REGIMEN)
     Route: 065
  3. CYTARABINE [Suspect]
     Active Substance: CYTARABINE
     Indication: Acute myeloid leukaemia
     Dosage: 100 MILLIGRAM/SQ. METER, EVERY 12 HRS (ON DAY 1-DAY 7); (INDUCTION THERAPY WITH DAE REGIMEN)
     Route: 065

REACTIONS (3)
  - Renal impairment [Recovered/Resolved]
  - Gastrointestinal infection [Recovered/Resolved]
  - Off label use [Unknown]
